FAERS Safety Report 6262984-9 (Version None)
Quarter: 2009Q3

REPORT INFORMATION
  Report Type: 
  Country: None (occurrence: None)
  Receive Date: 20090710
  Receipt Date: 20090708
  Transmission Date: 20100115
  Serious: Yes (Other)
  Sender: FDA-Public Use
  Company Number: DE-JNJCH-2009018519

PATIENT
  Age: 33 Year
  Sex: Female
  Weight: 60 kg

DRUGS (1)
  1. REGAINE 2% [Suspect]
     Indication: ALOPECIA
     Dosage: TEXT:UNSPECIFIED
     Route: 061
     Dates: start: 20080920, end: 20090101

REACTIONS (2)
  - PERICARDIAL EFFUSION [None]
  - VENTRICULAR EXTRASYSTOLES [None]
